FAERS Safety Report 5083039-5 (Version None)
Quarter: 2006Q3

REPORT INFORMATION
  Report Type: 
  Country: None (occurrence: None)
  Receive Date: 20060814
  Receipt Date: 20060801
  Transmission Date: 20061208
  Serious: Yes (Hospitalization)
  Sender: FDA-Public Use
  Company Number: 2006095112

PATIENT
  Age: 51 Year
  Sex: Female

DRUGS (2)
  1. SU-011,248 (SUNITINIB MALATE) [Suspect]
     Indication: RENAL CELL CARCINOMA STAGE UNSPECIFIED
     Dosage: (37.5 MG, 1 IN 1 D), ORAL
     Route: 048
     Dates: start: 20051220
  2. HYDROCHLOROTHIAZIDE [Concomitant]

REACTIONS (2)
  - BACK PAIN [None]
  - NEUROMYOPATHY [None]
